FAERS Safety Report 21121455 (Version 2)
Quarter: 2022Q3

REPORT INFORMATION
  Report Type: Spontaneous
  Country: ES (occurrence: ES)
  Receive Date: 20220722
  Receipt Date: 20220803
  Transmission Date: 20221026
  Serious: Yes (Life-Threatening)
  Sender: FDA-Public Use
  Company Number: ES-AMERICAN REGENT INC-2022001994

PATIENT
  Age: 39 Year
  Sex: Female

DRUGS (2)
  1. FERINJECT [Suspect]
     Active Substance: FERRIC CARBOXYMALTOSE
     Indication: Blood iron decreased
     Dosage: 1000 MILLIGRAM
     Route: 042
     Dates: start: 20220525, end: 20220525
  2. FERINJECT [Suspect]
     Active Substance: FERRIC CARBOXYMALTOSE
     Dosage: 500 MILLIGRAM
     Route: 042
     Dates: start: 20220608, end: 20220608

REACTIONS (1)
  - Kounis syndrome [Recovered/Resolved]

NARRATIVE: CASE EVENT DATE: 20220608
